FAERS Safety Report 5740448-6 (Version None)
Quarter: 2008Q2

REPORT INFORMATION
  Report Type: 
  Country: None (occurrence: None)
  Receive Date: 20080516
  Receipt Date: 20080507
  Transmission Date: 20081010
  Serious: Yes (Other)
  Sender: FDA-Public Use
  Company Number: US-ELI_LILLY_AND_COMPANY-US200805001348

PATIENT
  Sex: Female

DRUGS (8)
  1. GEMZAR [Suspect]
     Indication: BONE SARCOMA
     Dosage: 2 MG/KG, UNK
  2. LEVOTHYROXINE SODIUM [Concomitant]
     Indication: THYROID DISORDER
  3. ASPIRIN [Concomitant]
  4. GLUCOSAMINE/CHONDROITIN /01625901/ [Concomitant]
     Indication: ARTHROPATHY
  5. OMEGA-3 FATTY ACIDS [Concomitant]
     Indication: VITAMIN SUPPLEMENTATION
  6. TUMS [Concomitant]
     Indication: MINERAL SUPPLEMENTATION
  7. VITAMIN D3 [Concomitant]
     Indication: MINERAL SUPPLEMENTATION
  8. CARBOPLATIN [Concomitant]
     Indication: BONE SARCOMA

REACTIONS (5)
  - FEELING HOT [None]
  - PARAESTHESIA [None]
  - SWELLING [None]
  - TACHYCARDIA [None]
  - TACHYPNOEA [None]
